FAERS Safety Report 21207960 (Version 2)
Quarter: 2022Q3

REPORT INFORMATION
  Report Type: Spontaneous
  Country: US (occurrence: US)
  Receive Date: 20220812
  Receipt Date: 20220818
  Transmission Date: 20221027
  Serious: No
  Sender: FDA-Public Use
  Company Number: US-PFIZER INC-PV202200041117

PATIENT
  Age: 68 Year
  Sex: Female

DRUGS (1)
  1. IBRANCE [Suspect]
     Active Substance: PALBOCICLIB
     Dosage: 125 MG, CYCLIC (3X7 UD TAB 21)

REACTIONS (4)
  - Neoplasm progression [Unknown]
  - Computerised tomogram abnormal [Unknown]
  - Blood glucose increased [Unknown]
  - Tumour marker increased [Unknown]
